FAERS Safety Report 8062251-7 (Version None)
Quarter: 2012Q1

REPORT INFORMATION
  Report Type: 
  Country: None (occurrence: None)
  Receive Date: 20120123
  Receipt Date: 20120119
  Transmission Date: 20120608
  Serious: Yes (Life-Threatening, Hospitalization)
  Sender: FDA-Public Use
  Company Number: DK-B.I. PHARMACEUTICALS,INC./RIDGEFIELD-2012-SW-00040DB

PATIENT
  Sex: Male
  Weight: 75 kg

DRUGS (3)
  1. PRADAXA [Suspect]
     Indication: ATRIAL FIBRILLATION
     Dosage: 300 MG
     Route: 048
     Dates: start: 20111222
  2. METOPROLOL TARTRATE [Concomitant]
     Indication: HEART RATE INCREASED
     Dosage: 50 MG
     Route: 048
  3. AMLODIPINE [Concomitant]
     Indication: HYPERTENSION

REACTIONS (5)
  - HEMIPARESIS [None]
  - SUBDURAL HAEMATOMA [None]
  - APHASIA [None]
  - DIZZINESS [None]
  - FATIGUE [None]
